FAERS Safety Report 7543207-7 (Version None)
Quarter: 2011Q2

REPORT INFORMATION
  Report Type: 
  Country: None (occurrence: None)
  Receive Date: 20110613
  Receipt Date: 20110606
  Transmission Date: 20111010
  Serious: Yes (Hospitalization)
  Sender: FDA-Public Use
  Company Number: JP-MERCK-1106USA00282

PATIENT
  Age: 73 Year
  Sex: Male
  Weight: 68 kg

DRUGS (9)
  1. ASPIRIN [Suspect]
     Route: 048
  2. METFORMIN HCL [Suspect]
     Route: 048
     Dates: end: 20110413
  3. ACTOS [Concomitant]
     Route: 048
     Dates: end: 20110413
  4. DIOVAN [Concomitant]
     Route: 048
  5. LIVALO [Concomitant]
     Route: 048
  6. GLYBURIDE [Concomitant]
     Route: 048
     Dates: end: 20110413
  7. JANUVIA [Suspect]
     Indication: DIABETES MELLITUS
     Route: 048
     Dates: start: 20100101, end: 20110413
  8. MAINHEART [Concomitant]
     Route: 048
  9. PLAVIX [Suspect]
     Route: 048
     Dates: end: 20110413

REACTIONS (3)
  - GASTRIC ULCER [None]
  - REFLUX OESOPHAGITIS [None]
  - UPPER GASTROINTESTINAL HAEMORRHAGE [None]
